FAERS Safety Report 6769681-1 (Version None)
Quarter: 2010Q2

REPORT INFORMATION
  Report Type: 
  Country: None (occurrence: None)
  Receive Date: 20100603
  Receipt Date: 20100520
  Transmission Date: 20101027
  Serious: Yes (Hospitalization)
  Sender: FDA-Public Use
  Company Number: WAES 1005USA00698

PATIENT
  Age: 48 Year
  Sex: Female

DRUGS (10)
  1. JANUVIA [Suspect]
     Indication: TYPE 2 DIABETES MELLITUS
     Dosage: 50 MG/DAILY PO; 100 MG/DAILY PO
     Route: 048
     Dates: start: 20100303, end: 20100427
  2. JANUVIA [Suspect]
     Indication: TYPE 2 DIABETES MELLITUS
     Dosage: 50 MG/DAILY PO; 100 MG/DAILY PO
     Route: 048
     Dates: start: 20100428, end: 20100506
  3. PLACEBO (UNSPECIFIED) [Suspect]
     Indication: TYPE 2 DIABETES MELLITUS
     Dosage: PO
     Route: 048
     Dates: start: 20091028, end: 20091110
  4. PLACEBO (UNSPECIFIED) [Suspect]
     Indication: TYPE 2 DIABETES MELLITUS
     Dosage: PO
     Route: 048
     Dates: start: 20091111, end: 20100302
  5. TAB BLINDED THERAPY [Suspect]
     Indication: TYPE 2 DIABETES MELLITUS
     Dosage: PO
     Route: 048
     Dates: start: 20091111, end: 20100302
  6. ATHEROPAN [Concomitant]
  7. HUMALOG [Concomitant]
  8. MUCODYNE [Concomitant]
  9. NEOMALLERMIN TR [Concomitant]
  10. REMICUT [Concomitant]

REACTIONS (2)
  - CAROTID ARTERY OCCLUSION [None]
  - CEREBRAL INFARCTION [None]
